FAERS Safety Report 8475184 (Version 5)
Quarter: 2013Q1

REPORT INFORMATION
  Report Type: Spontaneous
  Country: BR (occurrence: BR)
  Receive Date: 20120324
  Receipt Date: 20130218
  Transmission Date: 20140127
  Serious: Yes (Other)
  Sender: FDA-Public Use
  Company Number: BR-AMGEN-BRASP2012017403

PATIENT
  Age: 58 Year
  Sex: Female
  Weight: 84 kg

DRUGS (5)
  1. ENBREL [Suspect]
     Indication: RHEUMATOID ARTHRITIS
     Dosage: UNK
     Route: 058
     Dates: start: 2010
  2. ENBREL [Suspect]
     Dosage: 50 MG EVERY 8 DAYS.
     Route: 058
     Dates: start: 2010
  3. ENBREL [Suspect]
     Dosage: 50 MG, 1/XWEEK
     Route: 058
     Dates: start: 201111
  4. ENBREL [Suspect]
     Dosage: UNK
  5. PURAN T4 [Concomitant]
     Indication: THYROID DISORDER
     Dosage: 150 MG, 1X/DAY
     Dates: start: 2002

REACTIONS (15)
  - Haemorrhage [Recovering/Resolving]
  - Arrhythmia [Recovering/Resolving]
  - Blood glucose increased [Unknown]
  - Blood pressure increased [Recovering/Resolving]
  - Immune system disorder [Recovering/Resolving]
  - High density lipoprotein increased [Unknown]
  - Vitamin D abnormal [Unknown]
  - C-reactive protein increased [Unknown]
  - Rheumatoid factor increased [Unknown]
  - Aspartate aminotransferase increased [Unknown]
  - Alanine aminotransferase increased [Unknown]
  - Injection site erythema [Recovering/Resolving]
  - Injection site swelling [Unknown]
  - Injection site pain [Unknown]
  - Injection site oedema [Recovering/Resolving]
